FAERS Safety Report 7999182-4 (Version None)
Quarter: 2011Q4

REPORT INFORMATION
  Report Type: 
  Country: None (occurrence: None)
  Receive Date: 20111216
  Receipt Date: 20111205
  Transmission Date: 20120403
  Serious: Yes (Hospitalization)
  Sender: FDA-Public Use
  Company Number: 2011P1013913

PATIENT
  Sex: Female

DRUGS (1)
  1. MORPHINE SULFATE [Suspect]

REACTIONS (3)
  - STAPHYLOCOCCAL INFECTION [None]
  - DEVICE BATTERY ISSUE [None]
  - OVERDOSE [None]
